FAERS Safety Report 13578803 (Version 1)
Quarter: 2017Q2

REPORT INFORMATION
  Report Type: Spontaneous
  Country: US (occurrence: US)
  Receive Date: 20170524
  Receipt Date: 20170524
  Transmission Date: 20170830
  Serious: Yes (Hospitalization)
  Sender: FDA-Public Use
  Company Number: None

PATIENT
  Age: 65 Year
  Sex: Male

DRUGS (6)
  1. NIFEDIPINE. [Concomitant]
     Active Substance: NIFEDIPINE
  2. FLOMAX [Concomitant]
     Active Substance: TAMSULOSIN HYDROCHLORIDE
  3. TESTOPEL [Suspect]
     Active Substance: TESTOSTERONE
     Indication: TESTICULAR FAILURE
     Dosage: 10 PELLETS EVERY 4 MONTHS IMPLANT
     Dates: start: 20160322
  4. FISH OIL [Concomitant]
     Active Substance: FISH OIL
  5. VYTORIN [Concomitant]
     Active Substance: EZETIMIBE\SIMVASTATIN
  6. CRANBERRY CAP [Concomitant]

REACTIONS (2)
  - Urinary tract obstruction [None]
  - Malaise [None]

NARRATIVE: CASE EVENT DATE: 20170502
